FAERS Safety Report 4885441-0 (Version None)
Quarter: 2005Q4

REPORT INFORMATION
  Report Type: 
  Country: None (occurrence: None)
  Receive Date: 20051220
  Receipt Date: 20050610
  Transmission Date: 20060501
  Serious: Yes (Other)
  Sender: FDA-Public Use
  Company Number: HQWYE048108JUL05

PATIENT
  Sex: Female

DRUGS (1)
  1. EFFEXOR XR [Suspect]
     Dosage: 150MG (FREQUENCY UNSPECIFIED)

REACTIONS (3)
  - DRUG WITHDRAWAL SYNDROME [None]
  - LHERMITTE'S SIGN [None]
  - NAUSEA [None]
